FAERS Safety Report 20006516 (Version 1)
Quarter: 2021Q4

REPORT INFORMATION
  Report Type: Spontaneous
  Country: US (occurrence: US)
  Receive Date: 20211028
  Receipt Date: 20211028
  Transmission Date: 20220304
  Serious: Yes (unspecified)
  Sender: FDA-Public Use
  Company Number: None

PATIENT
  Age: 60 Year
  Sex: Male
  Weight: 90 kg

DRUGS (4)
  1. BARICITINIB [Suspect]
     Active Substance: BARICITINIB
     Indication: COVID-19
     Route: 048
     Dates: start: 20210825, end: 20210901
  2. dexamethasone 6mg oral daily [Concomitant]
     Dates: start: 20210821, end: 20210831
  3. enoxaparin 30mg SC q12 [Concomitant]
     Dates: start: 20210823, end: 20210904
  4. REMDESIVIR [Concomitant]
     Active Substance: REMDESIVIR
     Dates: start: 20210822, end: 20211028

REACTIONS (4)
  - Pseudomonas infection [None]
  - Urinary tract infection [None]
  - Deep vein thrombosis [None]
  - Escherichia infection [None]

NARRATIVE: CASE EVENT DATE: 20210904
